FAERS Safety Report 11828984 (Version 1)
Quarter: 2015Q4

REPORT INFORMATION
  Report Type: Report from Study
  Country: US (occurrence: US)
  Receive Date: 20151211
  Receipt Date: 20151211
  Transmission Date: 20160305
  Serious: Yes (Death, Other)
  Sender: FDA-Public Use
  Company Number: US-BRISTOL-MYERS SQUIBB COMPANY-BMS-2015-085816

PATIENT
  Age: 36 Year
  Sex: Female

DRUGS (4)
  1. EFAVIRENZ, EMTRICITABINE, AND TENOFOVIR DISOPROXIL FUMARATE [Suspect]
     Active Substance: EFAVIRENZ\EMTRICITABINE\TENOFOVIR DISOPROXIL FUMARATE
     Indication: ANTIRETROVIRAL THERAPY
     Dosage: 600/200/300
     Route: 048
     Dates: start: 20150205, end: 20151113
  2. ETOPOSIDE. [Suspect]
     Active Substance: ETOPOSIDE
     Indication: ANTIRETROVIRAL THERAPY
     Dosage: 50 MG, BID
     Route: 048
     Dates: start: 20150205, end: 20150317
  3. PACLITAXEL. [Suspect]
     Active Substance: PACLITAXEL
     Indication: ANTIRETROVIRAL THERAPY
     Dosage: 50 MG, UNK
     Route: 042
     Dates: start: 20150409, end: 20150722
  4. ABACAVIR. [Suspect]
     Active Substance: ABACAVIR
     Indication: ANTIRETROVIRAL THERAPY
     Dosage: 300 MG, QD
     Route: 048
     Dates: start: 20151113, end: 20151127

REACTIONS (2)
  - Bacterial sepsis [Fatal]
  - Renal failure [Unknown]

NARRATIVE: CASE EVENT DATE: 20151126
